FAERS Safety Report 12305071 (Version 1)
Quarter: 2016Q2

REPORT INFORMATION
  Report Type: Spontaneous
  Country: US (occurrence: US)
  Receive Date: 20160426
  Receipt Date: 20160426
  Transmission Date: 20160815
  Serious: No
  Sender: FDA-Public Use
  Company Number: US-MYLANLABS-2015M1014768

PATIENT
  Sex: Male

DRUGS (6)
  1. METOPROLOL TARTRATE. [Concomitant]
     Active Substance: METOPROLOL TARTRATE
     Indication: HYPERTENSION
     Dosage: 25 MG, TID
     Dates: start: 1996
  2. VERAPAMIL HYDROCHLORIDE EXTENDED-RELEASE TABLETS, USP [Suspect]
     Active Substance: VERAPAMIL HYDROCHLORIDE
     Indication: ATRIAL FIBRILLATION
     Dosage: 360 MG, QD
     Route: 048
  3. NITROGLYCERIN. [Concomitant]
     Active Substance: NITROGLYCERIN
     Dosage: 0.4 MG, UNK
  4. ASPIRIN                            /00002701/ [Concomitant]
     Active Substance: ASPIRIN
     Dosage: 325 MG, QD
  5. VERAPAMIL HYDROCHLORIDE EXTENDED-RELEASE TABLETS, USP [Suspect]
     Active Substance: VERAPAMIL HYDROCHLORIDE
     Dosage: 240 MG, QD
     Route: 048
  6. VERAPAMIL HYDROCHLORIDE EXTENDED-RELEASE TABLETS, USP [Suspect]
     Active Substance: VERAPAMIL HYDROCHLORIDE
     Indication: HYPERTENSION
     Dosage: 240 MG, QD
     Route: 048

REACTIONS (4)
  - Hypertension [Recovered/Resolved]
  - Insomnia [Recovered/Resolved]
  - Heart rate increased [Recovered/Resolved]
  - Blood pressure decreased [Recovered/Resolved]
